FAERS Safety Report 6270463-8 (Version None)
Quarter: 2009Q3

REPORT INFORMATION
  Report Type: 
  Country: None (occurrence: None)
  Receive Date: 20090716
  Receipt Date: 20090707
  Transmission Date: 20100115
  Serious: Yes (Death)
  Sender: FDA-Public Use
  Company Number: US-AVENTIS-200916650GDDC

PATIENT
  Age: 81 Year
  Sex: Male

DRUGS (2)
  1. DOCETAXEL [Suspect]
     Dosage: DOSE: UNK
  2. GOSERELIN [Suspect]
     Dosage: DOSE: UNK

REACTIONS (1)
  - ACUTE MYELOID LEUKAEMIA [None]
